FAERS Safety Report 17647054 (Version 2)
Quarter: 2020Q2

REPORT INFORMATION
  Report Type: Spontaneous
  Country: US (occurrence: US)
  Receive Date: 20200408
  Receipt Date: 20200408
  Transmission Date: 20200713
  Serious: Yes (Other)
  Sender: FDA-Public Use
  Company Number: US-GILEAD-2020-0457868

PATIENT
  Sex: Female

DRUGS (1)
  1. EPCLUSA [Suspect]
     Active Substance: SOFOSBUVIR\VELPATASVIR
     Indication: HEPATITIS C
     Dosage: UNK
     Route: 065
     Dates: start: 2018

REACTIONS (6)
  - Limb operation [Unknown]
  - Synovial cyst [Unknown]
  - Drug ineffective [Unknown]
  - Limb operation [Unknown]
  - Cyst [Unknown]
  - Hepatitis C [Unknown]

NARRATIVE: CASE EVENT DATE: 2018
